FAERS Safety Report 18170331 (Version 1)
Quarter: 2020Q3

REPORT INFORMATION
  Report Type: Spontaneous
  Country: DE (occurrence: DE)
  Receive Date: 20200819
  Receipt Date: 20200819
  Transmission Date: 20201103
  Serious: Yes (Hospitalization)
  Sender: FDA-Public Use
  Company Number: DE-MYLANLABS-2020M1071229

PATIENT
  Age: 85 Year
  Sex: Female
  Weight: 56 kg

DRUGS (11)
  1. BISOPROLOL [Suspect]
     Active Substance: BISOPROLOL
     Indication: PRODUCT USED FOR UNKNOWN INDICATION
     Dosage: 5 MILLIGRAM (5 MG, 0.5?0?0?0, TABLETTEN)
     Route: 048
  2. TORASEMIDE [Suspect]
     Active Substance: TORSEMIDE
     Indication: PRODUCT USED FOR UNKNOWN INDICATION
     Dosage: 10 MILLIGRAM, BID (10 MG, 1?1?0?0, TABLETTEN)
     Route: 048
  3. OPIPRAMOL [Suspect]
     Active Substance: OPIPRAMOL
     Indication: PRODUCT USED FOR UNKNOWN INDICATION
     Dosage: 50 MILLIGRAM, QD (50 MG, 1X, TABLETTEN)
     Route: 048
  4. COLECALCIFEROL [Concomitant]
     Active Substance: CHOLECALCIFEROL
     Dosage: 1000 INTERNATIONAL UNIT, QD (1000 IE, 1?0?0?0, TABLETTEN)
     Route: 048
  5. CITALOPRAM [Concomitant]
     Active Substance: CITALOPRAM HYDROBROMIDE
     Dosage: 20 MILLIGRAM, QD (20 MG, 1?0?0?0, TABLETTEN)
     Route: 048
  6. SIMVASTATIN. [Concomitant]
     Active Substance: SIMVASTATIN
     Dosage: 60 MILLIGRAM, QD (60 MG, 0?0?1?0, TABLETTEN)
     Route: 048
  7. VALSARTAN. [Concomitant]
     Active Substance: VALSARTAN
     Dosage: 40 MILLIGRAM (40 MG, 0.5?0?0?0, TABLETTEN)
     Route: 048
  8. METAMIZOL                          /06276701/ [Concomitant]
     Active Substance: METAMIZOLE
     Dosage: 500 MILLIGRAM, TID (500 MG, 1?1?1?0, TABLETTEN)
     Route: 048
  9. GLYCOPYRRONIUM BROMIDE W/INDACATEROL MALEATE [Concomitant]
     Active Substance: GLYCOPYRROLATE\INDACATEROL MALEATE
     Dosage: UNK UNK, QD (43|85 ?G, 1?0?0?0, TABLETTEN)
     Route: 048
  10. SPIRONOLACTONE. [Suspect]
     Active Substance: SPIRONOLACTONE
     Indication: PRODUCT USED FOR UNKNOWN INDICATION
     Dosage: 50 MILLIGRAM (50 MG, 0.5?0?0?0, TABLETTEN)
     Route: 048
  11. CHININ [Concomitant]
     Active Substance: QUININE HYDROCHLORIDE
     Dosage: 165.74 MILLIGRAM, QD (165.74 MG, 0?0?0?1, TABLETTEN)
     Route: 048

REACTIONS (2)
  - Orthopnoea [Unknown]
  - Dyspnoea [Unknown]
